FAERS Safety Report 6123636-9 (Version None)
Quarter: 2009Q1

REPORT INFORMATION
  Report Type: 
  Country: None (occurrence: None)
  Receive Date: 20090317
  Receipt Date: 20090306
  Transmission Date: 20090719
  Serious: Yes (Other)
  Sender: FDA-Public Use
  Company Number: 2009-00902

PATIENT
  Age: 61 Year
  Sex: Male

DRUGS (2)
  1. VELCADE [Suspect]
     Indication: MULTIPLE MYELOMA
  2. DEXAMETHASONE TAB [Suspect]
     Indication: MULTIPLE MYELOMA

REACTIONS (4)
  - ILEUS PARALYTIC [None]
  - NEUROGENIC BLADDER [None]
  - PLASMACYTOMA [None]
  - SPINAL COMPRESSION FRACTURE [None]
